FAERS Safety Report 5217034-X (Version None)
Quarter: 2007Q1

REPORT INFORMATION
  Report Type: 
  Country: None (occurrence: None)
  Receive Date: 20070124
  Receipt Date: 20070117
  Transmission Date: 20070707
  Serious: Yes (Other)
  Sender: FDA-Public Use
  Company Number: JP-AVENTIS-200710130JP

PATIENT
  Age: 47 Year
  Sex: Male

DRUGS (2)
  1. AMARYL [Suspect]
     Route: 048
  2. BASEN [Concomitant]

REACTIONS (1)
  - RENAL FAILURE ACUTE [None]
